FAERS Safety Report 8772412 (Version 3)
Quarter: 2013Q1

REPORT INFORMATION
  Report Type: Spontaneous
  Country: DE (occurrence: DE)
  Receive Date: 20120905
  Receipt Date: 20130102
  Transmission Date: 20140127
  Serious: Yes (Hospitalization, Other)
  Sender: FDA-Public Use
  Company Number: PHHY2012DE076686

PATIENT
  Age: 58 Year
  Sex: Female

DRUGS (6)
  1. ACLASTA [Suspect]
     Indication: OSTEOPOROSIS
     Dosage: 5 MG, UNK
     Route: 042
     Dates: start: 20120709
  2. TAMBOCOR [Concomitant]
     Indication: ATRIAL FIBRILLATION
     Dosage: PILL IN THE POCKET
  3. AROMASIN [Concomitant]
     Dosage: 25 MG, ONCE DAILY
     Dates: start: 2009
  4. BELOC-ZOC MITE [Concomitant]
     Dosage: HALF DRUG TWICE A DAY
  5. PANTOZOL [Concomitant]
     Dosage: 40 MG, ONCE DAILY
  6. L-THYROXIN [Concomitant]
     Dosage: 50 UG, ONCE DAILY

REACTIONS (19)
  - Thrombotic thrombocytopenic purpura [Recovering/Resolving]
  - Haemolysis [Recovered/Resolved]
  - Blood lactate dehydrogenase increased [Recovering/Resolving]
  - Platelet count decreased [Recovering/Resolving]
  - Infection [Recovering/Resolving]
  - Sepsis [Recovering/Resolving]
  - Pyrexia [Recovered/Resolved]
  - Chills [Recovering/Resolving]
  - Hepatic cyst [Unknown]
  - Renal cyst [Unknown]
  - Aortic arteriosclerosis [Unknown]
  - Pancreatic steatosis [Unknown]
  - Splenomegaly [Unknown]
  - Tricuspid valve incompetence [Unknown]
  - Left ventricular hypertrophy [Unknown]
  - Pulmonary hypertension [Unknown]
  - Diastolic dysfunction [Unknown]
  - Leukopenia [Unknown]
  - Atrial fibrillation [Unknown]
